FAERS Safety Report 23124488 (Version 1)
Quarter: 2023Q4

REPORT INFORMATION
  Report Type: Spontaneous
  Country: FR (occurrence: FR)
  Receive Date: 20231030
  Receipt Date: 20231030
  Transmission Date: 20240110
  Serious: Yes (Death)
  Sender: FDA-Public Use
  Company Number: None

PATIENT
  Age: 0 Day

DRUGS (10)
  1. DIAZEPAM [Suspect]
     Active Substance: DIAZEPAM
     Indication: Maternal drugs affecting foetus
     Route: 050
     Dates: start: 20220106, end: 20220518
  2. COCAINE [Suspect]
     Active Substance: COCAINE
     Indication: Maternal use of illicit drugs
  3. TRIMEPRAZINE [Suspect]
     Active Substance: TRIMEPRAZINE
     Indication: Maternal drugs affecting foetus
     Route: 050
     Dates: start: 20220106, end: 20220518
  4. CHLORPROMAZINE [Suspect]
     Active Substance: CHLORPROMAZINE
     Indication: Maternal drugs affecting foetus
     Dosage: SI BESOIN
     Route: 050
     Dates: start: 20220106, end: 20220518
  5. VALPROIC ACID [Suspect]
     Active Substance: VALPROIC ACID
     Indication: Maternal drugs affecting foetus
     Dosage: 300X3/J
     Route: 050
     Dates: start: 20220106, end: 20220202
  6. LEVOMEPROMAZINE [Suspect]
     Active Substance: LEVOMEPROMAZINE
     Indication: Maternal drugs affecting foetus
     Route: 050
     Dates: start: 20220106, end: 20220518
  7. LOVENOX [Suspect]
     Active Substance: ENOXAPARIN SODIUM
     Indication: Maternal drugs affecting foetus
     Route: 050
     Dates: start: 20220106, end: 20220518
  8. OLANZAPINE [Suspect]
     Active Substance: OLANZAPINE
     Indication: Maternal drugs affecting foetus
     Route: 050
     Dates: start: 20220106, end: 20220518
  9. HALDOL [Suspect]
     Active Substance: HALOPERIDOL
     Indication: Maternal drugs affecting foetus
     Route: 050
     Dates: start: 20220106, end: 20220518
  10. CANNABIS SATIVA SUBSP. INDICA TOP [Suspect]
     Active Substance: CANNABIS SATIVA SUBSP. INDICA TOP
     Indication: Maternal use of illicit drugs

REACTIONS (3)
  - Gastrointestinal necrosis [Fatal]
  - Premature baby [Fatal]
  - Abdominal hernia [Fatal]

NARRATIVE: CASE EVENT DATE: 20220518
